FAERS Safety Report 7414173-X (Version None)
Quarter: 2011Q1

REPORT INFORMATION
  Report Type: 
  Country: None (occurrence: None)
  Receive Date: 20110302
  Receipt Date: 20101203
  Transmission Date: 20110831
  Serious: No
  Sender: FDA-Public Use
  Company Number: 018530

PATIENT
  Sex: Female
  Weight: 81.6 kg

DRUGS (8)
  1. CIMZIA [Suspect]
     Indication: CROHN'S DISEASE
     Dosage: 400 MG 1X/MONTH SUBCUTANEOUS
     Route: 058
     Dates: start: 20090415
  2. ASPIRIN [Concomitant]
  3. TOCOPHEROL CONCENTRATE CAP [Concomitant]
  4. ZOLOFT [Concomitant]
  5. MESALAMINE [Concomitant]
  6. SYNTHROID [Concomitant]
  7. MOBIC [Concomitant]
  8. METOPROLOL [Concomitant]

REACTIONS (4)
  - FATIGUE [None]
  - WEIGHT DECREASED [None]
  - ASTHENIA [None]
  - SENSATION OF HEAVINESS [None]
